FAERS Safety Report 4662738-0 (Version None)
Quarter: 2005Q2

REPORT INFORMATION
  Report Type: 
  Country: None (occurrence: None)
  Receive Date: 20050516
  Receipt Date: 20050512
  Transmission Date: 20051028
  Serious: Yes (Hospitalization)
  Sender: FDA-Public Use
  Company Number: FR-GLAXOSMITHKLINE-B0380707A

PATIENT
  Age: 53 Year
  Sex: Female

DRUGS (1)
  1. ESKAZOLE [Suspect]
     Indication: HEPATIC CYST
     Route: 048
     Dates: start: 20050215, end: 20050419

REACTIONS (3)
  - ABDOMINAL PAIN [None]
  - HEPATIC ENZYME INCREASED [None]
  - HEPATOCELLULAR DAMAGE [None]
